FAERS Safety Report 11500934 (Version 1)
Quarter: 2015Q3

REPORT INFORMATION
  Report Type: Spontaneous
  Country: US (occurrence: None)
  Receive Date: 20150911
  Receipt Date: 20150911
  Transmission Date: 20151125
  Serious: Yes (Hospitalization)
  Sender: FDA-Public Use
  Company Number: None

PATIENT
  Age: 66 Year
  Sex: Female
  Weight: 195 kg

DRUGS (5)
  1. VICTOZA [Suspect]
     Active Substance: LIRAGLUTIDE
     Indication: BLOOD GLUCOSE INCREASED
     Dosage: 1.2 ML  ONCE DAILY  INTO THE MUSCLE
     Route: 030
     Dates: start: 20140701, end: 20150901
  2. SYMVISTATIN [Concomitant]
  3. NIACIN. [Concomitant]
     Active Substance: NIACIN
  4. VITAMIN D [Concomitant]
     Active Substance: CHOLECALCIFEROL
  5. METFORMIN [Concomitant]
     Active Substance: METFORMIN HYDROCHLORIDE

REACTIONS (2)
  - Nephrolithiasis [None]
  - Calculus ureteric [None]

NARRATIVE: CASE EVENT DATE: 20150904
